FAERS Safety Report 9702733 (Version 2)
Quarter: 2013Q4

REPORT INFORMATION
  Report Type: Spontaneous
  Country: SZ (occurrence: None)
  Receive Date: 20131120
  Receipt Date: 20131217
  Transmission Date: 20140711
  Serious: Yes (Other)
  Sender: FDA-Public Use
  Company Number: 20130664

PATIENT
  Age: 84 Year
  Sex: Female
  Weight: 75 kg

DRUGS (5)
  1. FERINJECT [Suspect]
     Indication: HAEMORRHAGIC ANAEMIA
     Dates: start: 201304, end: 201305
  2. BISOPROLOL (BISOPROLOL) [Concomitant]
  3. PANTOPRAZOLE (PANTOPRAZOLE SODIUM SEQUIHYDRATE) [Concomitant]
  4. RAMIPRIL (RAMIPRIL) [Concomitant]
  5. SIMVASTATIN (SIMVASTATIN) [Concomitant]

REACTIONS (1)
  - Loss of consciousness [None]
